FAERS Safety Report 10518382 (Version 2)
Quarter: 2014Q4

REPORT INFORMATION
  Report Type: Spontaneous
  Country: JP (occurrence: JP)
  Receive Date: 20141015
  Receipt Date: 20141112
  Transmission Date: 20150528
  Serious: Yes (Hospitalization)
  Sender: FDA-Public Use
  Company Number: JP-ELI_LILLY_AND_COMPANY-JP201410002879

PATIENT
  Age: 86 Year
  Sex: Female

DRUGS (6)
  1. SINGULAIR [Concomitant]
     Active Substance: MONTELUKAST SODIUM
     Route: 048
  2. FORTEO [Suspect]
     Active Substance: TERIPARATIDE
     Indication: OSTEOPOROSIS
     Dosage: 20 UG, QD
     Route: 058
     Dates: start: 20140707, end: 20140916
  3. SLOW K [Concomitant]
     Active Substance: POTASSIUM CHLORIDE
     Route: 048
  4. WARFARIN POTASSIUM [Concomitant]
     Active Substance: WARFARIN POTASSIUM
     Route: 048
  5. DESYREL [Concomitant]
     Active Substance: TRAZODONE HYDROCHLORIDE
     Route: 048
  6. MUCODYNE [Concomitant]
     Active Substance: CARBOCYSTEINE
     Route: 048

REACTIONS (2)
  - Seizure [Unknown]
  - Arrhythmia [Unknown]

NARRATIVE: CASE EVENT DATE: 20140916
